FAERS Safety Report 4552708-5 (Version None)
Quarter: 2005Q1

REPORT INFORMATION
  Report Type: 
  Country: None (occurrence: None)
  Receive Date: 20050112
  Receipt Date: 20050112
  Transmission Date: 20050727
  Serious: Yes (Other)
  Sender: FDA-Public Use
  Company Number: None

PATIENT
  Sex: Female
  Weight: 28 kg

DRUGS (2)
  1. REMICADE [Suspect]
     Indication: CROHN'S DISEASE
     Dosage: 140 MG Q 7 WEEKS INTRAVENOUS
     Route: 042
     Dates: start: 20040127, end: 20041123
  2. 6MP [Concomitant]

REACTIONS (2)
  - PNEUMONIA [None]
  - PYREXIA [None]
